FAERS Safety Report 6138037-7 (Version None)
Quarter: 2009Q1

REPORT INFORMATION
  Report Type: 
  Country: None (occurrence: None)
  Receive Date: 20090327
  Receipt Date: 20090327
  Transmission Date: 20090719
  Serious: Yes (Hospitalization, Disabling)
  Sender: FDA-Public Use
  Company Number: None

PATIENT
  Sex: Female
  Weight: 71.6683 kg

DRUGS (1)
  1. ATIVAN [Suspect]

REACTIONS (11)
  - ANAL SPHINCTER ATONY [None]
  - ANOREXIA [None]
  - BLADDER DISORDER [None]
  - DEAFNESS [None]
  - DEPRESSION [None]
  - MUSCLE DISORDER [None]
  - MYALGIA [None]
  - NERVOUS SYSTEM DISORDER [None]
  - OEDEMA [None]
  - PRODUCT QUALITY ISSUE [None]
  - TINNITUS [None]
